FAERS Safety Report 8859476 (Version 3)
Quarter: 2013Q1

REPORT INFORMATION
  Report Type: Spontaneous
  Country: GB (occurrence: GB)
  Receive Date: 20121024
  Receipt Date: 20130103
  Transmission Date: 20140127
  Serious: Yes (Other)
  Sender: FDA-Public Use
  Company Number: GB-ROCHE-1148162

PATIENT
  Age: 40 Year
  Sex: Female

DRUGS (3)
  1. XOLAIR [Suspect]
     Indication: URTICARIA CHRONIC
     Route: 058
     Dates: start: 201208
  2. CYCLOSPORIN [Concomitant]
     Route: 065
     Dates: end: 201209
  3. ELIDEL [Concomitant]

REACTIONS (2)
  - Malignant melanoma [Unknown]
  - Skin lesion [Unknown]
